FAERS Safety Report 5029317-7 (Version None)
Quarter: 2006Q2

REPORT INFORMATION
  Report Type: 
  Country: None (occurrence: None)
  Receive Date: 20060615
  Receipt Date: 20060615
  Transmission Date: 20061013
  Serious: Yes (Other)
  Sender: FDA-Public Use
  Company Number: None

PATIENT
  Age: 83 Year
  Sex: Female
  Weight: 57.6068 kg

DRUGS (1)
  1. TROVAN [Suspect]
     Indication: PNEUMONIA
     Dosage: 100 MG QDAY
     Dates: start: 19990318, end: 19990323

REACTIONS (2)
  - RASH ERYTHEMATOUS [None]
  - SKIN BURNING SENSATION [None]
